FAERS Safety Report 17827726 (Version 4)
Quarter: 2021Q1

REPORT INFORMATION
  Report Type: Spontaneous
  Country: AR (occurrence: AR)
  Receive Date: 20200527
  Receipt Date: 20210301
  Transmission Date: 20210419
  Serious: Yes (Other)
  Sender: FDA-Public Use
  Company Number: AR-MYLANLABS-2020M1020827

PATIENT
  Age: 41 Year
  Sex: Male

DRUGS (3)
  1. DIVALPROEX SODIUM. [Concomitant]
     Active Substance: DIVALPROEX SODIUM
     Dosage: 1500 MILLIGRAM, QD
  2. LAPENAX [Suspect]
     Active Substance: CLOZAPINE
     Indication: PRODUCT USED FOR UNKNOWN INDICATION
     Dosage: 250 MG DIVIDED INTO 4 DOSES
     Dates: start: 201908
  3. PHENOBARBITAL. [Concomitant]
     Active Substance: PHENOBARBITAL
     Dosage: 100 MG IN 2 DOSES

REACTIONS (5)
  - Leukopenia [Recovered/Resolved]
  - Lymphocyte count increased [Unknown]
  - Neutropenia [Recovered/Resolved]
  - Monocyte count increased [Unknown]
  - Red blood cell count decreased [Unknown]

NARRATIVE: CASE EVENT DATE: 20200219
